FAERS Safety Report 10355879 (Version 1)
Quarter: 2014Q3

REPORT INFORMATION
  Report Type: Report from Study
  Country: US (occurrence: US)
  Receive Date: 20140801
  Receipt Date: 20140801
  Transmission Date: 20150326
  Serious: Yes (Hospitalization)
  Sender: FDA-Public Use
  Company Number: US-ROCHE-1401802

PATIENT
  Age: 37 Year
  Sex: Male
  Weight: 86.26 kg

DRUGS (15)
  1. VENTOLIN [Concomitant]
     Active Substance: ALBUTEROL SULFATE
  2. EPIPEN [Concomitant]
     Active Substance: EPINEPHRINE
     Dosage: PER ALLERGIC EMERGENCY
     Route: 030
  3. SYMBICORT [Concomitant]
     Active Substance: BUDESONIDE\FORMOTEROL FUMARATE DIHYDRATE
     Route: 065
  4. PATANASE [Concomitant]
     Active Substance: OLOPATADINE HYDROCHLORIDE
  5. ZYRTEC [Concomitant]
     Active Substance: CETIRIZINE HYDROCHLORIDE
     Route: 065
  6. ZITHROMAX [Concomitant]
     Active Substance: AZITHROMYCIN DIHYDRATE
     Route: 048
  7. PREDNISONE. [Suspect]
     Active Substance: PREDNISONE
     Indication: PRODUCT USED FOR UNKNOWN INDICATION
     Route: 065
  8. SINGULAIR [Concomitant]
     Active Substance: MONTELUKAST SODIUM
  9. ZITHROMAX [Concomitant]
     Active Substance: AZITHROMYCIN DIHYDRATE
  10. XOPENEX HFA [Concomitant]
     Active Substance: LEVALBUTEROL TARTRATE
     Route: 065
  11. FLUTICASONE PROPIONATE. [Concomitant]
     Active Substance: FLUTICASONE PROPIONATE
     Route: 045
  12. ZITHROMAX [Concomitant]
     Active Substance: AZITHROMYCIN DIHYDRATE
     Route: 048
  13. XOLAIR [Suspect]
     Active Substance: OMALIZUMAB
     Indication: ASTHMA
     Route: 058
  14. PROVENTIL [Concomitant]
     Active Substance: ALBUTEROL
  15. RHINOCORT [Concomitant]
     Active Substance: BUDESONIDE

REACTIONS (10)
  - Nasal discharge discolouration [Unknown]
  - Anaphylactic reaction [Unknown]
  - Insomnia [Unknown]
  - Dysphonia [Unknown]
  - Nasal polyps [Unknown]
  - Back injury [Unknown]
  - Toothache [Unknown]
  - Rhinitis [Unknown]
  - Hypersensitivity [Unknown]
  - Lethargy [Unknown]

NARRATIVE: CASE EVENT DATE: 20080515
